FAERS Safety Report 5165150-3 (Version None)
Quarter: 2006Q4

REPORT INFORMATION
  Report Type: 
  Country: None (occurrence: None)
  Receive Date: 20061124
  Receipt Date: 20061113
  Transmission Date: 20070319
  Serious: Yes (Death, Hospitalization)
  Sender: FDA-Public Use
  Company Number: 2006-02624

PATIENT
  Age: 71 Year
  Sex: Male
  Weight: 99 kg

DRUGS (2)
  1. VELCADE [Suspect]
     Indication: MYELODYSPLASTIC SYNDROME
     Dosage: 3.30 MG INTRAVENOUS
     Route: 042
     Dates: start: 20061002, end: 20061016
  2. ARACYTINE (CYTARABINE) INJECTION, 10 OR 20 MG/M2 [Suspect]
     Indication: MYELODYSPLASTIC SYNDROME
     Dosage: 44.00 MG SUBCUTANEOUS
     Route: 058
     Dates: start: 20061002, end: 20061016

REACTIONS (12)
  - ANURIA [None]
  - CHEST X-RAY ABNORMAL [None]
  - CONDITION AGGRAVATED [None]
  - HILAR LYMPHADENOPATHY [None]
  - HYPOTENSION [None]
  - ILEUS PARALYTIC [None]
  - INTESTINAL OBSTRUCTION [None]
  - RENAL FAILURE [None]
  - RESPIRATORY DISORDER [None]
  - RESPIRATORY DISTRESS [None]
  - SEPTIC SHOCK [None]
  - STAPHYLOCOCCAL BACTERAEMIA [None]
